FAERS Safety Report 19055669 (Version 1)
Quarter: 2021Q1

REPORT INFORMATION
  Report Type: Spontaneous
  Country: IT (occurrence: IT)
  Receive Date: 20210325
  Receipt Date: 20210325
  Transmission Date: 20210420
  Serious: Yes (Hospitalization)
  Sender: FDA-Public Use
  Company Number: IT-ACCORD-220692

PATIENT
  Age: 78 Year
  Sex: Male
  Weight: 71 kg

DRUGS (9)
  1. BISOPROLOL [Concomitant]
     Active Substance: BISOPROLOL
  2. ALLOPURINOL. [Concomitant]
     Active Substance: ALLOPURINOL
  3. XARELTO [Concomitant]
     Active Substance: RIVAROXABAN
  4. FUROSEMIDE. [Concomitant]
     Active Substance: FUROSEMIDE
     Dates: end: 20210204
  5. ATORVASTATIN [Concomitant]
     Active Substance: ATORVASTATIN
  6. ESAPENT [Concomitant]
  7. AMLODIPINE [Suspect]
     Active Substance: AMLODIPINE BESYLATE
     Indication: PRODUCT USED FOR UNKNOWN INDICATION
  8. RAMIPRIL. [Suspect]
     Active Substance: RAMIPRIL
     Indication: CARDIOMYOPATHY
     Dates: end: 20210204
  9. METFORMIN [Suspect]
     Active Substance: METFORMIN HYDROCHLORIDE
     Indication: DIABETES MELLITUS
     Dates: end: 20210204

REACTIONS (2)
  - Renal failure [Not Recovered/Not Resolved]
  - Metabolic acidosis [Not Recovered/Not Resolved]

NARRATIVE: CASE EVENT DATE: 20210204
